FAERS Safety Report 18872396 (Version 2)
Quarter: 2021Q2

REPORT INFORMATION
  Report Type: Spontaneous
  Country: US (occurrence: US)
  Receive Date: 20210210
  Receipt Date: 20210517
  Transmission Date: 20210717
  Serious: Yes (Other)
  Sender: FDA-Public Use
  Company Number: US-GLAXOSMITHKLINE-US2021GSK035005

PATIENT
  Sex: Male

DRUGS (6)
  1. RANITIDINE. [Suspect]
     Active Substance: RANITIDINE
     Dosage: UNK
  2. RANITIDINE. [Suspect]
     Active Substance: RANITIDINE
     Dosage: 150 MG
     Route: 065
     Dates: start: 200601, end: 201405
  3. RANITIDINE. [Suspect]
     Active Substance: RANITIDINE
     Indication: ABDOMINAL DISCOMFORT
     Dosage: 75 MG PRESCRIPTION
     Route: 065
     Dates: start: 200601, end: 201405
  4. RANITIDINE. [Suspect]
     Active Substance: RANITIDINE
     Dosage: 75 MG PRESCRIPTION
     Route: 065
     Dates: start: 200601, end: 201405
  5. RANITIDINE. [Suspect]
     Active Substance: RANITIDINE
     Dosage: 150 MG
     Route: 065
     Dates: start: 200601, end: 201405
  6. RANITIDINE. [Suspect]
     Active Substance: RANITIDINE
     Indication: ABDOMINAL DISCOMFORT
     Dosage: 75 MG PRESCRIPTION
     Route: 065
     Dates: start: 200601, end: 201405

REACTIONS (1)
  - Bladder cancer [Unknown]
